FAERS Safety Report 19104302 (Version 1)
Quarter: 2021Q2

REPORT INFORMATION
  Report Type: Other
  Country: FR (occurrence: FR)
  Receive Date: 20210407
  Receipt Date: 20210407
  Transmission Date: 20210717
  Serious: Yes (Hospitalization, Other)
  Sender: FDA-Public Use
  Company Number: FR-VALIDUS PHARMACEUTICALS LLC-FR-2021VAL000232

PATIENT
  Age: 63 Year
  Sex: Female

DRUGS (2)
  1. TARGOCID [Suspect]
     Active Substance: TEICOPLANIN
     Indication: ARTHRITIS INFECTIVE
     Dosage: UNK
     Route: 040
     Dates: start: 201611, end: 20161205
  2. CEFOTAXIME SODIUM [Suspect]
     Active Substance: CEFOTAXIME SODIUM
     Indication: ARTHRITIS INFECTIVE
     Dosage: 3 G, QD
     Route: 040
     Dates: start: 201611, end: 20161205

REACTIONS (1)
  - Seizure [Recovered/Resolved]

NARRATIVE: CASE EVENT DATE: 20161205
